FAERS Safety Report 14938876 (Version 1)
Quarter: 2018Q2

REPORT INFORMATION
  Report Type: Spontaneous
  Country: CH (occurrence: CH)
  Receive Date: 20180525
  Receipt Date: 20180525
  Transmission Date: 20180711
  Serious: Yes (Other)
  Sender: FDA-Public Use
  Company Number: CH-ENDO PHARMACEUTICALS INC-2018-037801

PATIENT
  Age: 74 Year
  Sex: Male

DRUGS (1)
  1. XIAPEX [Suspect]
     Active Substance: COLLAGENASE CLOSTRIDIUM HISTOLYTICUM
     Indication: DUPUYTREN^S CONTRACTURE
     Dosage: 0.58 MG, UNKNOWN
     Route: 026
     Dates: start: 20151026

REACTIONS (2)
  - Pulmonary embolism [Recovered/Resolved]
  - Pneumonia [Recovered/Resolved]

NARRATIVE: CASE EVENT DATE: 20151212
